FAERS Safety Report 8698044 (Version 2)
Quarter: 2013Q4

REPORT INFORMATION
  Report Type: Spontaneous
  Country: US (occurrence: US)
  Receive Date: 20120802
  Receipt Date: 20131105
  Transmission Date: 20140711
  Serious: Yes (Hospitalization)
  Sender: FDA-Public Use
  Company Number: US-MSD-1207USA010762

PATIENT
  Age: 69 Year
  Sex: Male

DRUGS (7)
  1. ZOCOR [Suspect]
     Dosage: 40 MG, QD
     Route: 048
  2. DAPTOMYCIN [Suspect]
     Dosage: 900 MG, QD
     Route: 042
  3. DAPTOMYCIN [Suspect]
     Dosage: 680 MG, QD
     Route: 042
  4. LEVOFLOXACIN [Concomitant]
  5. GENTAMICIN [Concomitant]
  6. CEFEPIME [Concomitant]
  7. VANCOMYCIN [Concomitant]

REACTIONS (4)
  - Blood creatinine increased [Unknown]
  - Blood potassium increased [Unknown]
  - Potentiating drug interaction [Unknown]
  - Rhabdomyolysis [Unknown]
